FAERS Safety Report 21121870 (Version 1)
Quarter: 2022Q3

REPORT INFORMATION
  Report Type: Spontaneous
  Country: US (occurrence: US)
  Receive Date: 20220722
  Receipt Date: 20220722
  Transmission Date: 20221026
  Serious: No
  Sender: FDA-Public Use
  Company Number: US-JNJFOC-20220721004

PATIENT
  Sex: Female

DRUGS (1)
  1. CHILDRENS ZYRTEC [Suspect]
     Active Substance: CETIRIZINE HYDROCHLORIDE
     Indication: Hypersensitivity
     Route: 048

REACTIONS (2)
  - Wrong technique in product usage process [Unknown]
  - Product formulation issue [Unknown]
